FAERS Safety Report 13495324 (Version 4)
Quarter: 2017Q2

REPORT INFORMATION
  Report Type: Report from Study
  Country: US (occurrence: US)
  Receive Date: 20170428
  Receipt Date: 20170526
  Transmission Date: 20170830
  Serious: No
  Sender: FDA-Public Use
  Company Number: US-AMGEN-USASP2017062768

PATIENT
  Age: 25 Year
  Sex: Female

DRUGS (1)
  1. ENBREL [Suspect]
     Active Substance: ETANERCEPT
     Indication: PSORIASIS
     Dosage: 50 MG, (EVERY 3 DAYS)
     Route: 065

REACTIONS (7)
  - Injection site pruritus [Unknown]
  - Drug dose omission [Unknown]
  - Injection site erythema [Unknown]
  - Intentional product misuse [Unknown]
  - Injection site rash [Unknown]
  - Hypersensitivity [Unknown]
  - Injection site swelling [Not Recovered/Not Resolved]

NARRATIVE: CASE EVENT DATE: 20170502
